FAERS Safety Report 8883572 (Version 1)
Quarter: 2012Q4

REPORT INFORMATION
  Report Type: 
  Country: US (occurrence: US)
  Receive Date: 20121102
  Receipt Date: 20121102
  Transmission Date: 20130627
  Serious: Yes (Hospitalization)
  Sender: FDA-Public Use
  Company Number: US-COVIDIEN/TYCO HEALTHCARE/MALLINCKRODT-T201203722

PATIENT
  Age: 60 Year
  Sex: Female

DRUGS (5)
  1. OPTIRAY [Suspect]
     Indication: IMAGING PROCEDURE
     Dosage: 113 ml, single
     Dates: start: 20120927, end: 20120927
  2. VERSED [Concomitant]
  3. FENTANYL [Concomitant]
  4. VERAPAMIL [Concomitant]
  5. HEPARIN [Concomitant]

REACTIONS (8)
  - Chest discomfort [Recovered/Resolved]
  - Periorbital oedema [Recovered/Resolved]
  - Lip oedema [Recovered/Resolved]
  - Pruritus [Recovered/Resolved]
  - Dizziness [Recovered/Resolved]
  - Nausea [Recovered/Resolved]
  - Vomiting [Recovered/Resolved]
  - Headache [Recovered/Resolved]
